FAERS Safety Report 6375100-X (Version None)
Quarter: 2009Q3

REPORT INFORMATION
  Report Type: 
  Country: None (occurrence: None)
  Receive Date: 20090924
  Receipt Date: 20090915
  Transmission Date: 20100115
  Serious: Yes (Hospitalization, Congenital Anomaly)
  Sender: FDA-Public Use
  Company Number: ZA-AVENTIS-200913683GDDC

PATIENT
  Age: 22 Year
  Sex: Female
  Weight: 42 kg

DRUGS (6)
  1. RIFAMPICIN [Suspect]
     Indication: PULMONARY TUBERCULOSIS
     Dates: start: 20081214
  2. CODE UNBROKEN [Suspect]
     Indication: PULMONARY TUBERCULOSIS
     Dates: start: 20081214
  3. PYRAZINAMIDE [Suspect]
     Indication: PULMONARY TUBERCULOSIS
     Dates: start: 20081214
  4. CODE UNBROKEN [Suspect]
     Dates: start: 20081214
  5. CODE UNBROKEN [Suspect]
     Route: 048
     Dates: start: 20081214
  6. VIT B COMPLEX [Concomitant]
     Dosage: DOSE: 2 TBL
     Route: 048
     Dates: start: 20090129

REACTIONS (2)
  - DRUG EXPOSURE DURING PREGNANCY [None]
  - STILLBIRTH [None]
